FAERS Safety Report 10051001 (Version 2)
Quarter: 2014Q2

REPORT INFORMATION
  Report Type: Report from Study
  Country: US (occurrence: US)
  Receive Date: 20140401
  Receipt Date: 20140401
  Transmission Date: 20141212
  Serious: Yes (Hospitalization)
  Sender: FDA-Public Use
  Company Number: US-BAYER-2014-011737

PATIENT
  Age: 69 Year
  Sex: Male

DRUGS (1)
  1. STIVARGA [Suspect]
     Indication: GASTRIC CANCER
     Dosage: 160 MG DAILY
     Route: 048
     Dates: start: 20131124

REACTIONS (6)
  - Diarrhoea [None]
  - Cholecystitis [None]
  - Blood pressure increased [None]
  - Heart rate increased [None]
  - Headache [None]
  - Hypersomnia [None]
